FAERS Safety Report 8201813-0 (Version None)
Quarter: 2012Q1

REPORT INFORMATION
  Report Type: 
  Country: None (occurrence: None)
  Receive Date: 20120312
  Receipt Date: 20120303
  Transmission Date: 20120608
  Serious: Yes (Hospitalization, Other)
  Sender: FDA-Public Use
  Company Number: US-BAYER-2011-028202

PATIENT
  Age: 21 Year
  Sex: Female
  Weight: 73 kg

DRUGS (11)
  1. FLOMAX [Concomitant]
     Dosage: 0.4 MG, UNK
     Route: 048
  2. PROMETHAZINE [Concomitant]
     Dosage: 25 MG, UNK
     Route: 048
  3. PHENDIMETRAZINE FUMARATE [Concomitant]
     Dosage: 35 MG, UNK
     Route: 048
  4. YAZ [Suspect]
     Indication: ACNE
  5. SULFAMETHOXAZOLE [Concomitant]
     Route: 048
  6. ARMODAFINIL [Concomitant]
     Indication: FUNGAL INFECTION
     Dosage: 150 MG, UNK
     Route: 048
  7. HYDROCODONE BITARTRATE [Concomitant]
     Route: 048
  8. HYDROCODONE BITARTRATE AND ACETAMINOPHEN [Concomitant]
     Route: 048
  9. KETOROLAC TROMETHAMINE [Concomitant]
     Dosage: 10 MG, UNK
     Route: 048
  10. YAZ [Suspect]
     Indication: ORAL CONTRACEPTION
     Dosage: UNK
     Dates: start: 20071001, end: 20080901
  11. CIPROFLOXACIN [Concomitant]
     Dosage: 500 MG, UNK
     Route: 048

REACTIONS (6)
  - ABDOMINAL PAIN UPPER [None]
  - GALLBLADDER DISORDER [None]
  - EMOTIONAL DISTRESS [None]
  - NEPHROLITHIASIS [None]
  - ANXIETY [None]
  - CHOLECYSTITIS [None]
